FAERS Safety Report 4724217-1 (Version None)
Quarter: 2005Q3

REPORT INFORMATION
  Report Type: 
  Country: None (occurrence: None)
  Receive Date: 20050726
  Receipt Date: 20050510
  Transmission Date: 20060218
  Serious: Yes (Death, Other)
  Sender: FDA-Public Use
  Company Number: PHBS2005JP06516

PATIENT
  Age: 81 Year
  Sex: Male

DRUGS (9)
  1. TEGRETOL [Suspect]
     Indication: EPILEPSY
     Dosage: 200 MG/DAY
     Route: 048
     Dates: start: 20020901
  2. TEGRETOL [Suspect]
     Dosage: 300 TO 400 MG/DAY
     Route: 048
     Dates: end: 20050501
  3. DIOVAN [Concomitant]
     Indication: HYPERTENSION
     Dosage: 80 MG/DAY
     Route: 048
     Dates: start: 19990601, end: 20050501
  4. NITRODERM [Concomitant]
     Indication: ANGINA PECTORIS
     Dates: start: 20000101, end: 20050501
  5. AMLODIN [Concomitant]
     Indication: HYPERTENSION
     Dosage: 5 MG/DAY
     Route: 048
     Dates: start: 19990601, end: 20050501
  6. PREDONINE [Concomitant]
     Indication: TEMPORAL ARTERITIS
     Dosage: 5 MG/DAY
     Route: 048
     Dates: start: 20020901, end: 20050501
  7. PANALDINE [Concomitant]
     Indication: ARTERIOSCLEROSIS
     Dosage: 200 MG/DAY
     Route: 048
     Dates: start: 19990601, end: 20050501
  8. GASTER D [Concomitant]
     Indication: GASTRITIS
     Dosage: 200 MG/DAY
     Route: 048
     Dates: start: 19990601, end: 20050501
  9. APLACE [Concomitant]
     Indication: GASTRITIS
     Dosage: 100 MG/DAY
     Route: 048
     Dates: start: 19990601, end: 20050501

REACTIONS (14)
  - CANDIDA SEPSIS [None]
  - CARDIAC FAILURE CONGESTIVE [None]
  - CEREBRAL INFARCTION [None]
  - CONDITION AGGRAVATED [None]
  - HAEMATOCRIT DECREASED [None]
  - HAEMOGLOBIN DECREASED [None]
  - IMMUNE SYSTEM DISORDER [None]
  - MYELODYSPLASTIC SYNDROME [None]
  - PANCYTOPENIA [None]
  - PLATELET COUNT DECREASED [None]
  - PNEUMONIA ASPIRATION [None]
  - RED BLOOD CELL COUNT DECREASED [None]
  - RESPIRATORY FAILURE [None]
  - WHITE BLOOD CELL COUNT DECREASED [None]
